FAERS Safety Report 17447894 (Version 5)
Quarter: 2020Q2

REPORT INFORMATION
  Report Type: Spontaneous
  Country: US (occurrence: US)
  Receive Date: 20200222
  Receipt Date: 20200610
  Transmission Date: 20200713
  Serious: No
  Sender: FDA-Public Use
  Company Number: NVSC2020US046309

PATIENT
  Age: 60 Year
  Sex: Female

DRUGS (2)
  1. LOSARTAN. [Concomitant]
     Active Substance: LOSARTAN
     Indication: HYPERTENSION
     Dosage: UNK
     Route: 065
  2. BEOVU [Suspect]
     Active Substance: BROLUCIZUMAB-DBLL
     Indication: PRODUCT USED FOR UNKNOWN INDICATION
     Dosage: UNK
     Route: 065
     Dates: start: 20191217, end: 20200128

REACTIONS (1)
  - Visual acuity reduced [Unknown]
